FAERS Safety Report 18759976 (Version 2)
Quarter: 2021Q1

REPORT INFORMATION
  Report Type: Spontaneous
  Country: BE (occurrence: BE)
  Receive Date: 20210120
  Receipt Date: 20210201
  Transmission Date: 20210419
  Serious: Yes (Hospitalization, Other)
  Sender: FDA-Public Use
  Company Number: BE-LUPIN PHARMACEUTICALS INC.-2021-00286

PATIENT
  Age: 40 Year
  Sex: Female

DRUGS (3)
  1. FLUNITRAZEPAM [Suspect]
     Active Substance: FLUNITRAZEPAM
     Indication: PRODUCT USED FOR UNKNOWN INDICATION
     Dosage: 2 DOSAGE FORM, QD (TWO TABLETS PER DAY)
     Route: 048
  2. LORAZEPAM. [Suspect]
     Active Substance: LORAZEPAM
     Indication: PRODUCT USED FOR UNKNOWN INDICATION
     Dosage: 7 DOSAGE FORM, QD (7 TABLETS)
     Route: 048
  3. LORAZEPAM. [Suspect]
     Active Substance: LORAZEPAM
     Dosage: 2.5 MILLIGRAM, TID (TABLET)
     Route: 048

REACTIONS (4)
  - Drug abuse [Unknown]
  - Confusional state [Recovered/Resolved]
  - Withdrawal catatonia [Recovered/Resolved]
  - Drug withdrawal syndrome [Recovered/Resolved]
